FAERS Safety Report 23487216 (Version 2)
Quarter: 2025Q1

REPORT INFORMATION
  Report Type: Report from Study
  Country: US (occurrence: US)
  Receive Date: 20240206
  Receipt Date: 20250115
  Transmission Date: 20250409
  Serious: No
  Sender: HRA PHARMA
  Company Number: US-ORG100014127-2023000473

PATIENT
  Age: 52 Year
  Sex: Male

DRUGS (13)
  1. LYSODREN [Suspect]
     Active Substance: MITOTANE
     Indication: Adrenal gland cancer
     Route: 048
     Dates: start: 20230419
  2. LYSODREN [Suspect]
     Active Substance: MITOTANE
     Indication: Adrenal gland cancer
     Dosage: 2 TABLETS (1,000 MG TOTAL) BY MOUTH DAILY.
     Route: 048
     Dates: end: 20240606
  3. HYDROCORTISONE [Concomitant]
     Active Substance: HYDROCORTISONE
     Indication: Adrenal gland cancer
  4. Acetamin tab 500mg [Concomitant]
     Indication: Product used for unknown indication
  5. Adderall xr 20mg capsule size [Concomitant]
     Indication: Product used for unknown indication
  6. Atorvastatin tablet 40 mg [Concomitant]
     Indication: Product used for unknown indication
  7. Famotidine tablet 20 mg [Concomitant]
     Indication: Product used for unknown indication
  8. FLUOXETINE HYDROCHLORIDE [Concomitant]
     Active Substance: FLUOXETINE HYDROCHLORIDE
     Indication: Product used for unknown indication
  9. GABAPENTIN [Concomitant]
     Active Substance: GABAPENTIN
     Indication: Product used for unknown indication
  10. Glipizide er tab 5mg [Concomitant]
     Indication: Product used for unknown indication
  11. Metformin tab 1000 mg [Concomitant]
     Indication: Product used for unknown indication
  12. Senna plus tablet  8.6-50 mg [Concomitant]
     Indication: Product used for unknown indication
  13. LISINOPRIL TAB 2.5MG [Concomitant]
     Indication: Product used for unknown indication

REACTIONS (9)
  - Reading disorder [Not Recovered/Not Resolved]
  - Insomnia [Not Recovered/Not Resolved]
  - Abdominal pain [Not Recovered/Not Resolved]
  - Memory impairment [Not Recovered/Not Resolved]
  - Balance disorder [Not Recovered/Not Resolved]
  - Decreased appetite [Not Recovered/Not Resolved]
  - Diarrhoea [Not Recovered/Not Resolved]
  - Dizziness [Not Recovered/Not Resolved]
  - Fatigue [Not Recovered/Not Resolved]

NARRATIVE: CASE EVENT DATE: 20230401
